FAERS Safety Report 13737624 (Version 1)
Quarter: 2017Q3

REPORT INFORMATION
  Report Type: Spontaneous
  Country: US (occurrence: US)
  Receive Date: 20170710
  Receipt Date: 20170710
  Transmission Date: 20171127
  Serious: No
  Sender: FDA-Public Use
  Company Number: US-SAOL THERAPEUTICS-2016SAO01013

PATIENT
  Sex: Male
  Weight: 104.31 kg

DRUGS (20)
  1. BACLOFEN. [Suspect]
     Active Substance: BACLOFEN
     Indication: MUSCLE SPASTICITY
     Dosage: UNK
     Route: 037
     Dates: start: 20160505
  2. MULTIVITAMIN [Concomitant]
     Active Substance: VITAMINS
     Dosage: UNK, 1X/DAY
  3. DOXYCYCLINE HYCLATE. [Concomitant]
     Active Substance: DOXYCYCLINE HYCLATE
     Dosage: 100 MG, 1X/DAY
  4. MOBIC [Concomitant]
     Active Substance: MELOXICAM
     Dosage: 15 MG, 1X/DAY
  5. LYRICA [Concomitant]
     Active Substance: PREGABALIN
     Dosage: 100 MG, 2X/DAY
  6. TRAMADOL HYDROCHLORIDE. [Concomitant]
     Active Substance: TRAMADOL HYDROCHLORIDE
     Dosage: 1 TABLETS, UNK
  7. ETODOLAC. [Concomitant]
     Active Substance: ETODOLAC
     Dosage: 400 MG, 2X/DAY
  8. LIORESAL [Suspect]
     Active Substance: BACLOFEN
     Indication: MUSCLE SPASTICITY
     Dosage: 900 ?G, \DAY
     Route: 037
     Dates: start: 20161013
  9. ZYRTEC [Concomitant]
     Active Substance: CETIRIZINE HYDROCHLORIDE
     Dosage: 10 MG, 1X/DAY
  10. LIORESAL [Suspect]
     Active Substance: BACLOFEN
     Dosage: 985 ?G, \DAY
     Route: 037
  11. OMEPRAZOLE DELAYED RELEASE [Concomitant]
     Active Substance: OMEPRAZOLE
     Dosage: 20 MG, 2X/DAY
  12. TIZANIDINE HYDROCHLORIDE. [Concomitant]
     Active Substance: TIZANIDINE HYDROCHLORIDE
     Dosage: 4 MG, AS NEEDED
  13. BACLOFEN. [Concomitant]
     Active Substance: BACLOFEN
     Dosage: 40 MG, 1X/DAY
     Route: 048
  14. LIORESAL [Suspect]
     Active Substance: BACLOFEN
     Dosage: 1100 ?G, \DAY
     Route: 037
     Dates: start: 20161103
  15. CALCIUM + D [Concomitant]
     Active Substance: CALCIUM\VITAMIN D
     Dosage: 1 TABLETS, 2X/DAY
  16. DULERA [Concomitant]
     Active Substance: FORMOTEROL FUMARATE DIHYDRATE\MOMETASONE FUROATE
     Dosage: 2 DOSAGE UNITS, 2X/DAY
  17. RAPAFLO [Concomitant]
     Active Substance: SILODOSIN
     Dosage: 8 MG, 1X/DAY
  18. MORPHINE [Suspect]
     Active Substance: MORPHINE
     Dosage: UNK
     Route: 037
  19. BISOPROLOL/HYDROCHLOROTHIAZIDE [Concomitant]
     Active Substance: BISOPROLOL FUMARATE\HYDROCHLOROTHIAZIDE
     Dosage: 1 TABLETS, \DAY
  20. TYLENOL [Concomitant]
     Active Substance: ACETAMINOPHEN
     Dosage: 325 MG, AS NEEDED

REACTIONS (4)
  - Muscle spasms [Unknown]
  - Musculoskeletal stiffness [Unknown]
  - Therapeutic response decreased [Recovering/Resolving]
  - Back pain [Unknown]

NARRATIVE: CASE EVENT DATE: 2016
